FAERS Safety Report 17859481 (Version 1)
Quarter: 2020Q2

REPORT INFORMATION
  Report Type: Spontaneous
  Country: EC (occurrence: EC)
  Receive Date: 20200604
  Receipt Date: 20200604
  Transmission Date: 20200714
  Serious: Yes (Death, Hospitalization, Other)
  Sender: FDA-Public Use
  Company Number: EC-BAXTER-2020BAX008703

PATIENT
  Age: 60 Year
  Sex: Male
  Weight: 90.5 kg

DRUGS (4)
  1. DIANEAL PD-2 PERITONEAL DIALYSIS SOLUTION WITH DEXTROSE [Suspect]
     Active Substance: CALCIUM CHLORIDE\DEXTROSE\MAGNESIUM CHLORIDE\SODIUM CHLORIDE\SODIUM LACTATE
     Indication: PERITONEAL DIALYSIS
  2. LOSARTAN. [Concomitant]
     Active Substance: LOSARTAN
     Indication: HYPERTENSION
     Route: 065
  3. IRBESARTAN. [Concomitant]
     Active Substance: IRBESARTAN
     Indication: HYPERTENSION
     Route: 065
  4. DIANEAL PD-2 PERITONEAL DIALYSIS SOLUTION WITH DEXTROSE [Suspect]
     Active Substance: CALCIUM CHLORIDE\DEXTROSE\MAGNESIUM CHLORIDE\SODIUM CHLORIDE\SODIUM LACTATE
     Indication: CHRONIC KIDNEY DISEASE
     Dosage: 4 BAGS PER DAY
     Route: 033
     Dates: start: 201910, end: 202004

REACTIONS (10)
  - Disorientation [Not Recovered/Not Resolved]
  - Blood creatinine increased [Unknown]
  - Peritoneal dialysis complication [Unknown]
  - General physical health deterioration [Not Recovered/Not Resolved]
  - Cardio-respiratory arrest [Fatal]
  - Escherichia peritonitis [Not Recovered/Not Resolved]
  - Encephalopathy [Fatal]
  - Blood urea increased [Unknown]
  - Seizure [Unknown]
  - Hypotension [Not Recovered/Not Resolved]

NARRATIVE: CASE EVENT DATE: 20200413
